FAERS Safety Report 24117686 (Version 2)
Quarter: 2025Q1

REPORT INFORMATION
  Report Type: Spontaneous
  Country: US (occurrence: US)
  Receive Date: 20240722
  Receipt Date: 20250328
  Transmission Date: 20250409
  Serious: No
  Sender: SANOFI AVENTIS
  Company Number: US-SA-SAC20240717000763

PATIENT
  Age: 74 Year
  Sex: Female
  Weight: 84.59 kg

DRUGS (25)
  1. KEVZARA [Suspect]
     Active Substance: SARILUMAB
     Indication: Polymyalgia rheumatica
     Dosage: 200 MG, QOW
     Route: 058
     Dates: start: 20240703
  2. LITHIUM [Interacting]
     Active Substance: LITHIUM
  3. TOPIRAMATE [Interacting]
     Active Substance: TOPIRAMATE
  4. AMLODIPINE BESYLATE [Concomitant]
     Active Substance: AMLODIPINE BESYLATE
  5. AMLODIPINE BESYLATE [Concomitant]
     Active Substance: AMLODIPINE BESYLATE
  6. ATORVASTATIN CALCIUM [Concomitant]
     Active Substance: ATORVASTATIN CALCIUM
  7. FISH OIL [Concomitant]
     Active Substance: FISH OIL
  8. FOLIC ACID [Concomitant]
     Active Substance: FOLIC ACID
  9. FOSAMAX [Concomitant]
     Active Substance: ALENDRONATE SODIUM
  10. KLONOPIN [Concomitant]
     Active Substance: CLONAZEPAM
  11. LITHIUM CARBONATE [Concomitant]
     Active Substance: LITHIUM CARBONATE
  12. PREDNISONE [Concomitant]
     Active Substance: PREDNISONE
  13. VITAMIN B12 [Concomitant]
     Active Substance: CYANOCOBALAMIN
  14. VITAMIN D3 [Concomitant]
     Active Substance: CHOLECALCIFEROL
  15. GABAPENTIN [Concomitant]
     Active Substance: GABAPENTIN
  16. NYSTATIN [Concomitant]
     Active Substance: NYSTATIN
  17. VITAMIN B COMPLEX [Concomitant]
     Active Substance: CYANOCOBALAMIN\DEXPANTHENOL\NIACINAMIDE\PYRIDOXINE HYDROCHLORIDE\RIBOFLAVIN 5^-PHOSPHATE SODIUM\THIA
  18. TROSPIUM CHLORIDE [Concomitant]
     Active Substance: TROSPIUM CHLORIDE
  19. PRIMIDONE [Concomitant]
     Active Substance: PRIMIDONE
  20. PRE PRO [Concomitant]
  21. VITAMIN D2 [Concomitant]
     Active Substance: ERGOCALCIFEROL
  22. NAPROXEN [Concomitant]
     Active Substance: NAPROXEN
  23. HYDROXYPROGESTERONE ACETATE [Concomitant]
  24. CLONAZEPAM [Concomitant]
     Active Substance: CLONAZEPAM
  25. DIVALPROEX SODIUM [Concomitant]
     Active Substance: DIVALPROEX SODIUM

REACTIONS (11)
  - Peripheral swelling [Not Recovered/Not Resolved]
  - Injection site pain [Unknown]
  - Injection site swelling [Unknown]
  - Dizziness [Unknown]
  - Weight decreased [Recovering/Resolving]
  - Constipation [Unknown]
  - Toxicity to various agents [Unknown]
  - Drug interaction [Unknown]
  - Chest pain [Unknown]
  - Hypophagia [Unknown]
  - Tremor [Unknown]

NARRATIVE: CASE EVENT DATE: 20240703
